FAERS Safety Report 23157648 (Version 1)
Quarter: 2023Q4

REPORT INFORMATION
  Report Type: Report from Study
  Country: US (occurrence: US)
  Receive Date: 20231108
  Receipt Date: 20231108
  Transmission Date: 20240110
  Serious: Yes (Other)
  Sender: FDA-Public Use
  Company Number: US-JNJFOC-20231103068

PATIENT

DRUGS (1)
  1. REMICADE [Suspect]
     Active Substance: INFLIXIMAB
     Indication: Osteomyelitis chronic
     Route: 041

REACTIONS (4)
  - Bacteraemia [Unknown]
  - Herpes zoster [Unknown]
  - Psoriasis [Unknown]
  - Off label use [Unknown]
